FAERS Safety Report 22774049 (Version 2)
Quarter: 2024Q2

REPORT INFORMATION
  Report Type: Report from Study
  Country: AU (occurrence: AU)
  Receive Date: 20230801
  Receipt Date: 20240513
  Transmission Date: 20240715
  Serious: Yes (Death)
  Sender: FDA-Public Use
  Company Number: AU-JNJFOC-20230640852

PATIENT
  Age: 85 Year
  Sex: Male

DRUGS (1)
  1. IMBRUVICA [Suspect]
     Active Substance: IBRUTINIB
     Indication: Product used for unknown indication
     Route: 048
     Dates: end: 20230612

REACTIONS (3)
  - Clostridium difficile infection [Fatal]
  - Megacolon [Fatal]
  - Clostridial sepsis [Fatal]
